FAERS Safety Report 9265433 (Version 1)
Quarter: 2013Q2

REPORT INFORMATION
  Report Type: Spontaneous
  Country: US (occurrence: US)
  Receive Date: 20130501
  Receipt Date: 20130501
  Transmission Date: 20140414
  Serious: No
  Sender: FDA-Public Use
  Company Number: US-ASTRAZENECA-2013SE25598

PATIENT
  Age: 57 Year
  Sex: Male
  Weight: 78.9 kg

DRUGS (6)
  1. NEXIUM [Suspect]
     Indication: GASTROOESOPHAGEAL REFLUX DISEASE
     Route: 048
     Dates: start: 2005
  2. PRILOSEC OTC [Suspect]
     Indication: GASTROOESOPHAGEAL REFLUX DISEASE
     Route: 048
     Dates: start: 2005
  3. MORPHINE [Suspect]
     Indication: PAIN
     Route: 065
  4. SOMA [Concomitant]
     Indication: MUSCLE RELAXANT THERAPY
     Dosage: 350 MG
     Dates: start: 2009
  5. HYDROCODONE [Concomitant]
     Indication: PAIN
     Dosage: 10 325 MG, TID
     Dates: start: 2009
  6. DIAZAPAM [Concomitant]
     Indication: ANXIETY
     Dates: start: 201303

REACTIONS (4)
  - Anxiety [Unknown]
  - Intervertebral disc degeneration [Unknown]
  - Spinal osteoarthritis [Unknown]
  - Drug ineffective [Unknown]
